FAERS Safety Report 9220660 (Version 1)
Quarter: 2013Q1

REPORT INFORMATION
  Report Type: Spontaneous
  Country: US (occurrence: None)
  Receive Date: 20120831
  Receipt Date: 20120831
  Transmission Date: 20140127
  Serious: No
  Sender: FDA-Public Use
  Company Number: 1000031095

PATIENT
  Age: 78 Year
  Sex: Female

DRUGS (5)
  1. DALIRESP (ROFLUMILAST) (500 MICROGRAM, TABLETS) [Suspect]
     Indication: CHRONIC OBSTRUCTIVE PULMONARY DISEASE
     Dosage: 500 MCG (500 MCG, 1 IN 1)
     Dates: start: 201205, end: 201205
  2. CLONIDINE (CLONIDINE) [Concomitant]
  3. EVISTA [Concomitant]
  4. XANAX (ALPRAZOLAM) (ALPRAZOLAM) [Concomitant]
  5. METHADONE (METHADONE) (METHADONE) [Concomitant]

REACTIONS (3)
  - Nausea [None]
  - Decreased appetite [None]
  - Influenza like illness [None]
